FAERS Safety Report 25853708 (Version 3)
Quarter: 2025Q4

REPORT INFORMATION
  Report Type: Spontaneous
  Country: US (occurrence: US)
  Receive Date: 20250926
  Receipt Date: 20251120
  Transmission Date: 20260117
  Serious: No
  Sender: PFIZER
  Company Number: US-PFIZER INC-202500169447

PATIENT
  Age: 12 Year
  Sex: Male
  Weight: 45.36 kg

DRUGS (7)
  1. GENOTROPIN [Suspect]
     Active Substance: SOMATROPIN
     Indication: Short stature
     Dosage: 1.4 MG, DAILY INJECTED IN THIGH OR STOMACH
     Route: 058
     Dates: start: 2023
  2. GENOTROPIN [Suspect]
     Active Substance: SOMATROPIN
     Indication: Growth retardation
  3. GENOTROPIN [Suspect]
     Active Substance: SOMATROPIN
     Indication: Low birth weight baby
  4. VYVANSE [Concomitant]
     Active Substance: LISDEXAMFETAMINE DIMESYLATE
     Dosage: UNK, DAILY
  5. GUANFACINE [Concomitant]
     Active Substance: GUANFACINE
     Dosage: UNK
  6. GUANFACINE [Concomitant]
     Active Substance: GUANFACINE
     Dosage: 1 MG, 2X/DAY
  7. ZYRTEC [Concomitant]
     Active Substance: CETIRIZINE HYDROCHLORIDE
     Dosage: UNK, DAILY

REACTIONS (5)
  - Drug dose omission by device [Unknown]
  - Device leakage [Unknown]
  - Device breakage [Unknown]
  - Device power source issue [Unknown]
  - Device information output issue [Unknown]

NARRATIVE: CASE EVENT DATE: 20250818
